FAERS Safety Report 17325377 (Version 2)
Quarter: 2020Q1

REPORT INFORMATION
  Report Type: Spontaneous
  Country: US (occurrence: US)
  Receive Date: 20200127
  Receipt Date: 20200205
  Transmission Date: 20200409
  Serious: Yes (Other)
  Sender: FDA-Public Use
  Company Number: US-JNJFOC-20200128635

PATIENT
  Sex: Female
  Weight: 90.8 kg

DRUGS (2)
  1. TYLENOL [Suspect]
     Active Substance: ACETAMINOPHEN
     Indication: PAIN
     Dosage: TWICE A DAY PRODUCT DOSE OR QUANTITY: 2 CAPLETS
     Route: 048
  2. TYLENOL [Suspect]
     Active Substance: ACETAMINOPHEN
     Indication: MYALGIA
     Dosage: 2 TWICE A DAY?LAST USED DATE: 16/JAN/2020
     Route: 048

REACTIONS (1)
  - Macular degeneration [Not Recovered/Not Resolved]
